FAERS Safety Report 4818958-5 (Version None)
Quarter: 2005Q4

REPORT INFORMATION
  Report Type: 
  Country: None (occurrence: None)
  Receive Date: 20051101
  Receipt Date: 20051019
  Transmission Date: 20060501
  Serious: Yes (Death)
  Sender: FDA-Public Use
  Company Number: 2005145622

PATIENT
  Age: 60 Year
  Sex: Male

DRUGS (4)
  1. METHYLPREDNISOLONE SODIUM SUCCINATE POWDER, STERILE (METHYLPREDNISOLON [Suspect]
     Indication: JUVENILE ARTHRITIS
     Dosage: 1000 MG (1 D), INTRAVENOUS
     Route: 042
  2. PREDNISONE [Suspect]
     Indication: JUVENILE ARTHRITIS
     Dosage: 1 MG/KG, ORAL
     Route: 048
  3. NSAID'S (NSAID'S) [Suspect]
     Indication: ILL-DEFINED DISORDER
  4. OMEPRAZOLE [Concomitant]

REACTIONS (5)
  - BLOODY DISCHARGE [None]
  - CYTOMEGALOVIRUS GASTROINTESTINAL INFECTION [None]
  - CYTOMEGALOVIRUS INFECTION [None]
  - DUODENAL ULCER [None]
  - THROMBOCYTOPENIA [None]
